FAERS Safety Report 22060215 (Version 1)
Quarter: 2023Q1

REPORT INFORMATION
  Report Type: Spontaneous
  Country: US (occurrence: US)
  Receive Date: 20230303
  Receipt Date: 20230303
  Transmission Date: 20230417
  Serious: No
  Sender: FDA-Public Use
  Company Number: US-PFIZER INC-202300087260

PATIENT
  Age: 47 Year
  Sex: Female
  Weight: 54.43 kg

DRUGS (2)
  1. NURTEC ODT [Suspect]
     Active Substance: RIMEGEPANT SULFATE
     Indication: Migraine
     Dosage: UNK
     Dates: start: 2022, end: 2023
  2. NURTEC ODT [Suspect]
     Active Substance: RIMEGEPANT SULFATE
     Dosage: UNK
     Dates: start: 2023

REACTIONS (5)
  - Nausea [Unknown]
  - Gastric disorder [Unknown]
  - Migraine [Recovering/Resolving]
  - Dizziness [Unknown]
  - Nasopharyngitis [Unknown]
